FAERS Safety Report 5883997-2 (Version None)
Quarter: 2008Q3

REPORT INFORMATION
  Report Type: 
  Country: None (occurrence: None)
  Receive Date: 20080915
  Receipt Date: 20080908
  Transmission Date: 20090109
  Serious: Yes (Hospitalization)
  Sender: FDA-Public Use
  Company Number: B0537060A

PATIENT
  Age: 9 Year
  Sex: Male

DRUGS (1)
  1. LAMICTAL [Suspect]
     Route: 048
     Dates: start: 20070424, end: 20070924

REACTIONS (4)
  - ANTINUCLEAR ANTIBODY INCREASED [None]
  - DACRYOADENITIS ACQUIRED [None]
  - LUPUS-LIKE SYNDROME [None]
  - PROTEINURIA [None]
